FAERS Safety Report 4726476-8 (Version None)
Quarter: 2005Q3

REPORT INFORMATION
  Report Type: 
  Country: None (occurrence: None)
  Receive Date: 20050725
  Receipt Date: 20050516
  Transmission Date: 20060218
  Serious: Yes (Other)
  Sender: FDA-Public Use
  Company Number: USA050597608

PATIENT
  Age: 6 Year
  Sex: Male
  Weight: 25 kg

DRUGS (1)
  1. STRATTERA [Suspect]
     Indication: ATTENTION DEFICIT/HYPERACTIVITY DISORDER
     Dosage: 25 MG DAY
     Dates: start: 20040801, end: 20040801

REACTIONS (6)
  - COLD SWEAT [None]
  - FATIGUE [None]
  - FEELING COLD [None]
  - HEART RATE IRREGULAR [None]
  - HYPERHIDROSIS [None]
  - TACHYCARDIA [None]
